FAERS Safety Report 10495832 (Version 1)
Quarter: 2014Q4

REPORT INFORMATION
  Report Type: Spontaneous
  Country: US (occurrence: US)
  Receive Date: 20141003
  Receipt Date: 20141003
  Transmission Date: 20150528
  Serious: Yes (Hospitalization, Other)
  Sender: FDA-Public Use
  Company Number: US-B.I. PHARMACEUTICALS,INC./RIDGEFIELD-2014-BI-46996BP

PATIENT
  Age: 82 Year
  Sex: Male

DRUGS (1)
  1. PRADAXA [Suspect]
     Active Substance: DABIGATRAN ETEXILATE MESYLATE
     Indication: PRODUCT USED FOR UNKNOWN INDICATION
     Route: 065

REACTIONS (18)
  - Streptococcal urinary tract infection [Unknown]
  - Ecchymosis [Not Recovered/Not Resolved]
  - Delirium [Not Recovered/Not Resolved]
  - Memory impairment [Unknown]
  - Constipation [Unknown]
  - Fall [Recovered/Resolved]
  - Skin abrasion [Not Recovered/Not Resolved]
  - Hyponatraemia [Recovered/Resolved]
  - Vitamin D deficiency [Unknown]
  - Muscular weakness [Unknown]
  - Hydrocephalus [Not Recovered/Not Resolved]
  - Neuropathy peripheral [Unknown]
  - Asthenia [Unknown]
  - Cerebral haemorrhage [Unknown]
  - Dementia [Unknown]
  - Fall [Not Recovered/Not Resolved]
  - Urinary retention [Unknown]
  - Oxygen saturation [Unknown]

NARRATIVE: CASE EVENT DATE: 2013
